FAERS Safety Report 25224012 (Version 2)
Quarter: 2025Q2

REPORT INFORMATION
  Report Type: Spontaneous
  Country: US (occurrence: US)
  Receive Date: 20250422
  Receipt Date: 20250425
  Transmission Date: 20250717
  Serious: No
  Sender: ABBVIE
  Company Number: US-ABBVIE-6234748

PATIENT

DRUGS (2)
  1. VRAYLAR [Suspect]
     Active Substance: CARIPRAZINE
     Indication: Maternal exposure timing unspecified
     Route: 064
  2. VRAYLAR [Suspect]
     Active Substance: CARIPRAZINE
     Indication: Maternal exposure timing unspecified
     Route: 063

REACTIONS (3)
  - Foetal exposure during pregnancy [Unknown]
  - Exposure via breast milk [Unknown]
  - Lethargy [Recovering/Resolving]

NARRATIVE: CASE EVENT DATE: 20250101
